FAERS Safety Report 6755812-6 (Version None)
Quarter: 2010Q2

REPORT INFORMATION
  Report Type: 
  Country: None (occurrence: None)
  Receive Date: 20100604
  Receipt Date: 20100526
  Transmission Date: 20101027
  Serious: Yes (Hospitalization, Other)
  Sender: FDA-Public Use
  Company Number: DE-ASTRAZENECA-2010SE23021

PATIENT
  Sex: Male
  Weight: 82 kg

DRUGS (10)
  1. NEXIUM [Suspect]
     Indication: GASTRITIS
     Route: 048
     Dates: start: 20100423
  2. NEXIUM [Suspect]
     Indication: GASTRITIS EROSIVE
     Route: 048
     Dates: start: 20100423
  3. NEXIUM [Suspect]
     Route: 048
     Dates: start: 20100430, end: 20100514
  4. NEXIUM [Suspect]
     Route: 048
     Dates: start: 20100430, end: 20100514
  5. NEXIUM [Suspect]
     Route: 048
  6. NEXIUM [Suspect]
     Route: 048
  7. ASPIRIN [Concomitant]
  8. EBRANTIL [Concomitant]
  9. AMLODIPINE [Concomitant]
  10. SIMVASTATIN [Concomitant]

REACTIONS (7)
  - AUTOIMMUNE PANCREATITIS [None]
  - BLOOD BILIRUBIN INCREASED [None]
  - HEPATIC ENZYME INCREASED [None]
  - HEPATITIS [None]
  - JAUNDICE [None]
  - OCULAR ICTERUS [None]
  - TRANSAMINASES INCREASED [None]
